FAERS Safety Report 6495370-7 (Version None)
Quarter: 2009Q4

REPORT INFORMATION
  Report Type: 
  Country: None (occurrence: None)
  Receive Date: 20091214
  Receipt Date: 20090610
  Transmission Date: 20100525
  Serious: No
  Sender: FDA-Public Use
  Company Number: US-BRISTOL-MYERS SQUIBB COMPANY-14658223

PATIENT
  Age: 47 Year
  Sex: Female
  Weight: 51 kg

DRUGS (8)
  1. ABILIFY [Suspect]
     Indication: MAJOR DEPRESSION
     Dates: start: 20090501
  2. LEXAPRO [Concomitant]
  3. SPIRONOLACTONE [Concomitant]
  4. PROMETRIUM [Concomitant]
  5. DEXAMETHASONE TAB [Concomitant]
  6. VITAMIN D [Concomitant]
  7. VITAMIN B COMPLEX CAP [Concomitant]
  8. LOVAZA [Concomitant]

REACTIONS (2)
  - PARAESTHESIA [None]
  - THOUGHT BROADCASTING [None]
